FAERS Safety Report 22386392 (Version 1)
Quarter: 2023Q2

REPORT INFORMATION
  Report Type: Spontaneous
  Country: US (occurrence: US)
  Receive Date: 20230531
  Receipt Date: 20230531
  Transmission Date: 20230722
  Serious: Yes (Life-Threatening, Hospitalization)
  Sender: FDA-Public Use
  Company Number: US-drreddys-LIT/USA/23/0165966

PATIENT
  Age: 25 Year
  Sex: Female

DRUGS (1)
  1. CLONIDINE [Suspect]
     Active Substance: CLONIDINE
     Indication: Product used for unknown indication
     Dosage: AT LEAST TEN CLONIDINE PILLS

REACTIONS (5)
  - Bradycardia [Recovering/Resolving]
  - Hypotension [Recovering/Resolving]
  - Lethargy [Unknown]
  - Intentional overdose [Unknown]
  - Maternal exposure during pregnancy [Unknown]
